FAERS Safety Report 4334171-2 (Version None)
Quarter: 2004Q2

REPORT INFORMATION
  Report Type: 
  Country: None (occurrence: None)
  Receive Date: 20040402
  Receipt Date: 20040324
  Transmission Date: 20050107
  Serious: Yes (Hospitalization)
  Sender: FDA-Public Use
  Company Number: MK200403-0128-1

PATIENT
  Age: 66 Year
  Sex: Female

DRUGS (8)
  1. OPTIRAY 350 [Suspect]
     Indication: CARDIAC IMAGING PROCEDURE
     Dosage: 120 ML
     Dates: start: 20040308, end: 20040308
  2. HEPARIN [Concomitant]
  3. HEPARIN [Concomitant]
  4. ASPIRIN [Concomitant]
  5. CILOSTAZOL [Concomitant]
  6. LANSOPRAZOLE [Concomitant]
  7. CARVEDILOL [Concomitant]
  8. IOMEPROL [Concomitant]

REACTIONS (12)
  - BLOOD PRESSURE DECREASED [None]
  - COLON CANCER [None]
  - DEPRESSED LEVEL OF CONSCIOUSNESS [None]
  - DYSPNOEA [None]
  - GASTRIC HAEMORRHAGE [None]
  - HAEMATEMESIS [None]
  - HAEMOGLOBIN DECREASED [None]
  - LARYNGEAL OEDEMA [None]
  - MEDIASTINAL HAEMATOMA [None]
  - MELAENA [None]
  - PHARYNGEAL OEDEMA [None]
  - VOMITING [None]
